FAERS Safety Report 5821400-9 (Version None)
Quarter: 2008Q3

REPORT INFORMATION
  Report Type: 
  Country: None (occurrence: None)
  Receive Date: 20080722
  Receipt Date: 20080722
  Transmission Date: 20090109
  Serious: Yes (Other)
  Sender: FDA-Public Use
  Company Number: None

PATIENT
  Sex: Female
  Weight: 90.9 kg

DRUGS (1)
  1. OPTIRAY 320 [Suspect]
     Indication: ANGIOGRAM

REACTIONS (3)
  - CHOKING [None]
  - COUGH [None]
  - DYSPNOEA [None]
